FAERS Safety Report 11972632 (Version 1)
Quarter: 2016Q1

REPORT INFORMATION
  Report Type: Report from Study
  Country: US (occurrence: US)
  Receive Date: 20160128
  Receipt Date: 20160128
  Transmission Date: 20160526
  Serious: Yes (Other)
  Sender: FDA-Public Use
  Company Number: US-BIOGEN-2016BI00181079

PATIENT
  Sex: Female

DRUGS (1)
  1. PLEGRIDY [Suspect]
     Active Substance: PEGINTERFERON BETA-1A
     Indication: MULTIPLE SCLEROSIS
     Route: 065

REACTIONS (10)
  - Optic nerve disorder [Unknown]
  - Pyrexia [Unknown]
  - Drug effect decreased [Unknown]
  - General physical health deterioration [Unknown]
  - General symptom [Unknown]
  - Brain neoplasm [Unknown]
  - Decreased interest [Unknown]
  - Infection [Unknown]
  - Malaise [Unknown]
  - Depression [Unknown]
